FAERS Safety Report 15431692 (Version 1)
Quarter: 2018Q3

REPORT INFORMATION
  Report Type: Spontaneous
  Country: US (occurrence: US)
  Receive Date: 20180926
  Receipt Date: 20180926
  Transmission Date: 20181010
  Serious: Yes (Death, Life-Threatening, Hospitalization, Disabling, Other)
  Sender: FDA-Public Use
  Company Number: US-BRISTOL-MYERS SQUIBB COMPANY-BMS-2018-088926

PATIENT
  Age: 83 Year
  Sex: Female
  Weight: 150 kg

DRUGS (1)
  1. OPDIVO [Suspect]
     Active Substance: NIVOLUMAB
     Indication: MALIGNANT MELANOMA
     Dosage: UNK
     Route: 041
     Dates: start: 20180801, end: 20180815

REACTIONS (18)
  - Head discomfort [Unknown]
  - Fatigue [Unknown]
  - Aphasia [Unknown]
  - Defaecation disorder [Unknown]
  - Peripheral swelling [Unknown]
  - Vision blurred [Unknown]
  - Blood creatine phosphokinase increased [Unknown]
  - Pain [Unknown]
  - Pollakiuria [Unknown]
  - Feeding disorder [Unknown]
  - Hallucination [Unknown]
  - Muscle disorder [Unknown]
  - Limb discomfort [Unknown]
  - Dyspnoea [Unknown]
  - Death [Fatal]
  - Heart rate decreased [Unknown]
  - Tremor [Unknown]
  - Hyperhidrosis [Unknown]

NARRATIVE: CASE EVENT DATE: 20180816
